FAERS Safety Report 10355725 (Version 1)
Quarter: 2014Q3

REPORT INFORMATION
  Report Type: Spontaneous
  Country: CH (occurrence: CH)
  Receive Date: 20140731
  Receipt Date: 20140731
  Transmission Date: 20150326
  Serious: Yes (Disabling, Other)
  Sender: FDA-Public Use
  Company Number: CH-ABBVIE-14P-151-1264898-00

PATIENT
  Age: 54 Year
  Sex: Male

DRUGS (5)
  1. KENACORT [Interacting]
     Active Substance: TRIAMCINOLONE
     Indication: OSTEOARTHRITIS
     Route: 014
     Dates: start: 20140311, end: 20140311
  2. DARUNAVIR [Concomitant]
     Active Substance: DARUNAVIR
     Indication: PRODUCT USED FOR UNKNOWN INDICATION
  3. KENACORT [Interacting]
     Active Substance: TRIAMCINOLONE
     Route: 014
     Dates: start: 20140427, end: 20140427
  4. KENACORT [Interacting]
     Active Substance: TRIAMCINOLONE
     Route: 014
     Dates: start: 20140408, end: 20140408
  5. NORVIR [Suspect]
     Active Substance: RITONAVIR
     Indication: ACUTE HIV INFECTION
     Route: 048
     Dates: start: 200703, end: 20140520

REACTIONS (9)
  - Muscular weakness [Unknown]
  - Drug interaction [Recovered/Resolved]
  - Acute respiratory distress syndrome [Unknown]
  - Weight decreased [Unknown]
  - Transaminases increased [Unknown]
  - Night sweats [Unknown]
  - Cushing^s syndrome [Recovering/Resolving]
  - Diarrhoea [Unknown]
  - Delirium [Unknown]

NARRATIVE: CASE EVENT DATE: 201403
